FAERS Safety Report 10461669 (Version 1)
Quarter: 2014Q3

REPORT INFORMATION
  Report Type: Spontaneous
  Country: CZ (occurrence: CZ)
  Receive Date: 20140918
  Receipt Date: 20140918
  Transmission Date: 20150326
  Serious: Yes (Hospitalization)
  Sender: FDA-Public Use
  Company Number: CZ-SA-2014SA124928

PATIENT
  Age: 75 Year
  Sex: Female
  Weight: 62 kg

DRUGS (8)
  1. MULTAQ [Suspect]
     Active Substance: DRONEDARONE
     Indication: ATRIAL FIBRILLATION
     Dosage: 800 MG
     Route: 065
  2. CAVINTON [Concomitant]
     Active Substance: VINPOCETINE
     Indication: ISCHAEMIC STROKE
     Dosage: 15 MG
  3. CONCOR [Concomitant]
     Active Substance: BISOPROLOL FUMARATE
     Indication: HYPERTENSION
     Dosage: 5 MG
  4. PIRACETAM [Concomitant]
     Active Substance: PIRACETAM
     Indication: ISCHAEMIC STROKE
     Dosage: 1600 MG - 800 MG - 0
  5. ENELBIN [Concomitant]
     Active Substance: NAFRONYL
     Indication: PERIPHERAL ARTERIAL OCCLUSIVE DISEASE
     Dosage: 300 MG
  6. PRADAXA [Suspect]
     Active Substance: DABIGATRAN ETEXILATE MESYLATE
     Indication: ATRIAL FIBRILLATION
     Dosage: 220 MG
     Route: 048
     Dates: start: 201111, end: 20111226
  7. TORVACARD [Concomitant]
     Active Substance: ATORVASTATIN CALCIUM
     Dosage: 20 MG
  8. HELICID [Concomitant]
     Indication: GASTROINTESTINAL ULCER
     Dosage: 20 MG

REACTIONS (1)
  - Small intestinal haemorrhage [Recovered/Resolved]
